FAERS Safety Report 5140704-9 (Version None)
Quarter: 2006Q4

REPORT INFORMATION
  Report Type: 
  Country: None (occurrence: None)
  Receive Date: 20061025
  Receipt Date: 20061013
  Transmission Date: 20070319
  Serious: Yes (Hospitalization, Other)
  Sender: FDA-Public Use
  Company Number: 2006127222

PATIENT
  Age: 56 Year
  Sex: Male

DRUGS (3)
  1. LYRICA [Suspect]
     Indication: NEURALGIA
     Dates: start: 20060901
  2. ALLOPURINOL [Suspect]
  3. DRUG (DRUG) [Concomitant]

REACTIONS (5)
  - DRUG INTERACTION [None]
  - HOSPITALISATION [None]
  - PRURITUS [None]
  - PYREXIA [None]
  - RASH [None]
